FAERS Safety Report 25361322 (Version 1)
Quarter: 2025Q2

REPORT INFORMATION
  Report Type: Spontaneous
  Country: US (occurrence: US)
  Receive Date: 20250527
  Receipt Date: 20250527
  Transmission Date: 20250717
  Serious: No
  Sender: AMGEN
  Company Number: US-AMGEN-USASP2025101484

PATIENT
  Age: 67 Year
  Sex: Female

DRUGS (5)
  1. PROLIA [Suspect]
     Active Substance: DENOSUMAB
     Indication: Osteoarthritis
     Dosage: UNK, Q6MO
     Route: 065
  2. BRIUMVI [Concomitant]
     Active Substance: UBLITUXIMAB-XIIY
     Indication: Multiple sclerosis
     Route: 040
     Dates: start: 20240524, end: 20240524
  3. BRIUMVI [Concomitant]
     Active Substance: UBLITUXIMAB-XIIY
     Route: 040
  4. BRIUMVI [Concomitant]
     Active Substance: UBLITUXIMAB-XIIY
     Route: 040
  5. BRIUMVI [Concomitant]
     Active Substance: UBLITUXIMAB-XIIY
     Route: 040
     Dates: start: 20250424, end: 20250424

REACTIONS (2)
  - Hot flush [Not Recovered/Not Resolved]
  - Off label use [Unknown]

NARRATIVE: CASE EVENT DATE: 20250425
